FAERS Safety Report 25913809 (Version 2)
Quarter: 2025Q4

REPORT INFORMATION
  Report Type: Report from Study
  Country: AR (occurrence: AR)
  Receive Date: 20251013
  Receipt Date: 20251029
  Transmission Date: 20260118
  Serious: Yes (Hospitalization)
  Sender: ROCHE
  Company Number: AR-002147023-NVSC2021AR008307

PATIENT
  Sex: Male

DRUGS (8)
  1. XOLAIR [Suspect]
     Active Substance: OMALIZUMAB
     Indication: Asthma
     Dosage: 900 MG, QMO
     Route: 058
     Dates: start: 20180701
  2. XOLAIR [Suspect]
     Active Substance: OMALIZUMAB
     Dosage: 900 MG, EVERY 4 WEEKS
     Route: 058
     Dates: start: 2021
  3. XOLAIR [Suspect]
     Active Substance: OMALIZUMAB
     Dosage: 900 MG, EVERY 4 WEEKS
     Route: 058
     Dates: start: 20250923
  4. XOLAIR [Suspect]
     Active Substance: OMALIZUMAB
     Dosage: 900 MG, EVERY 4 WEEKS
     Route: 065
     Dates: start: 20251015
  5. AMLODIPINE [Suspect]
     Active Substance: AMLODIPINE BESYLATE
     Indication: Hypertension
     Dosage: 5 MG
     Route: 065
  6. LASIX [Concomitant]
     Active Substance: FUROSEMIDE
     Indication: Product used for unknown indication
     Dosage: 40 MG, QD
     Route: 065
  7. LOTRIAL [ENALAPRILAT] [Concomitant]
     Indication: Hypertension
     Dosage: 10 MG
     Route: 065
  8. Diurex a [Concomitant]
     Indication: Hypertension
     Dosage: UNK
     Route: 065

REACTIONS (4)
  - Coronary artery occlusion [Recovered/Resolved]
  - COVID-19 [Unknown]
  - Blood pressure increased [Unknown]
  - Incorrect dose administered [Unknown]
